FAERS Safety Report 14822984 (Version 9)
Quarter: 2019Q1

REPORT INFORMATION
  Report Type: Report from Study
  Country: DE (occurrence: DE)
  Receive Date: 20180427
  Receipt Date: 20190210
  Transmission Date: 20190417
  Serious: Yes (Life-Threatening, Hospitalization, Other)
  Sender: FDA-Public Use
  Company Number: PHHY2018DE065903

PATIENT
  Age: 53 Year
  Sex: Female
  Weight: 70 kg

DRUGS (6)
  1. IVABRADINE [Concomitant]
     Active Substance: IVABRADINE
     Indication: CARDIAC FAILURE
     Dosage: 10 MG, UNK
     Route: 048
     Dates: start: 2013
  2. ENTRESTO [Suspect]
     Active Substance: SACUBITRIL\VALSARTAN
     Indication: NON-COMPACTION CARDIOMYOPATHY
     Dosage: 1 DF (24 MG SACUBITRIL AND 26 MG VALSARTAN), BID (1-0-1)
     Route: 048
     Dates: start: 20170524, end: 20170606
  3. ENTRESTO [Suspect]
     Active Substance: SACUBITRIL\VALSARTAN
     Dosage: 1 DF (49 MG SACUBITRIL AND 51 MG VALSARTAN), BID (1-0-1)
     Route: 048
     Dates: start: 20170621, end: 20180419
  4. METOPROLOL. [Concomitant]
     Active Substance: METOPROLOL
     Indication: CARDIAC FAILURE
     Dosage: 47.5 MG, UNK
     Route: 048
     Dates: start: 2015
  5. ENTRESTO [Suspect]
     Active Substance: SACUBITRIL\VALSARTAN
     Indication: EJECTION FRACTION DECREASED
     Dosage: 1 DF (24 MG SACUBITRIL AND 26 MG VALSARTAN)
     Route: 048
     Dates: start: 20170607, end: 20170620
  6. SPIRONOLACTONE. [Concomitant]
     Active Substance: SPIRONOLACTONE
     Indication: CARDIAC FAILURE
     Dosage: 25 MG, UNK
     Route: 048
     Dates: start: 2013

REACTIONS (6)
  - Ventricular tachycardia [Recovered/Resolved]
  - Arrhythmia [Recovering/Resolving]
  - Mental impairment [Recovering/Resolving]
  - Device inappropriate shock delivery [Recovered/Resolved]
  - Blood potassium increased [Unknown]
  - Device inappropriate shock delivery [Recovered/Resolved]

NARRATIVE: CASE EVENT DATE: 20180407
